FAERS Safety Report 18444849 (Version 1)
Quarter: 2020Q4

REPORT INFORMATION
  Report Type: Spontaneous
  Country: CN (occurrence: CN)
  Receive Date: 20201030
  Receipt Date: 20201030
  Transmission Date: 20210114
  Serious: Yes (Other)
  Sender: FDA-Public Use
  Company Number: CN-BAYER-2020-227852

PATIENT
  Age: 29 Year
  Sex: Female
  Weight: 53 kg

DRUGS (1)
  1. AVELOX [Suspect]
     Active Substance: MOXIFLOXACIN HYDROCHLORIDE
     Indication: PNEUMONIA
     Dosage: 1 DF, QD
     Route: 048
     Dates: start: 20191022, end: 20191023

REACTIONS (3)
  - Altered state of consciousness [Recovered/Resolved]
  - Delirium [Recovered/Resolved]
  - Depressed level of consciousness [Recovered/Resolved]

NARRATIVE: CASE EVENT DATE: 20191022
